FAERS Safety Report 4661637-8 (Version None)
Quarter: 2005Q2

REPORT INFORMATION
  Report Type: 
  Country: None (occurrence: None)
  Receive Date: 20050502
  Receipt Date: 20050112
  Transmission Date: 20051028
  Serious: No
  Sender: FDA-Public Use
  Company Number: 200510390US

PATIENT
  Age: 40 Year
  Sex: Female

DRUGS (2)
  1. KETEK [Suspect]
     Indication: SINUSITIS
     Dates: start: 20050106
  2. KETEK [Suspect]
     Indication: TONSILLITIS
     Dates: start: 20050106

REACTIONS (1)
  - RASH [None]
